FAERS Safety Report 20219297 (Version 1)
Quarter: 2021Q4

REPORT INFORMATION
  Report Type: Spontaneous
  Country: CA (occurrence: CA)
  Receive Date: 20211222
  Receipt Date: 20211222
  Transmission Date: 20220303
  Serious: Yes (Other)
  Sender: FDA-Public Use
  Company Number: CA-TEVA-2021-CA-1990212

PATIENT
  Age: 74 Year
  Sex: Male
  Weight: 56 kg

DRUGS (15)
  1. FLUCONAZOLE [Interacting]
     Active Substance: FLUCONAZOLE
     Indication: Product used for unknown indication
     Dosage: 200 MILLIGRAM DAILY;
     Route: 048
  2. ASPIRIN [Interacting]
     Active Substance: ASPIRIN
  3. BISMUTH [Interacting]
     Active Substance: BISMUTH
  4. BISOPROLOL [Interacting]
     Active Substance: BISOPROLOL
  5. FERROUS SULFATE [Interacting]
     Active Substance: FERROUS SULFATE
  6. JANUVIA [Interacting]
     Active Substance: SITAGLIPTIN PHOSPHATE
  7. POLYETHYLENE GLYCOL 3350 [Interacting]
     Active Substance: POLYETHYLENE GLYCOL 3350
  8. METFORMIN [Interacting]
     Active Substance: METFORMIN HYDROCHLORIDE
  9. METRONIDAZOLE [Interacting]
     Active Substance: METRONIDAZOLE
  10. PANTOPRAZOLE [Interacting]
     Active Substance: PANTOPRAZOLE
  11. ROSUVASTATIN [Interacting]
     Active Substance: ROSUVASTATIN
  12. SENNOSIDES [Interacting]
     Active Substance: SENNOSIDES
  13. TETRACYCLINE [Interacting]
     Active Substance: TETRACYCLINE
  14. TRANDOLAPRIL [Interacting]
     Active Substance: TRANDOLAPRIL
  15. CHOLECALCIFEROL [Interacting]
     Active Substance: CHOLECALCIFEROL

REACTIONS (1)
  - Drug interaction [Recovered/Resolved]
